FAERS Safety Report 25350906 (Version 5)
Quarter: 2025Q3

REPORT INFORMATION
  Report Type: Report from Study
  Country: US (occurrence: US)
  Receive Date: 20250523
  Receipt Date: 20250905
  Transmission Date: 20251021
  Serious: Yes (Hospitalization)
  Sender: ACADIA PHARMACEUTICALS
  Company Number: US-ACADIA PHARMACEUTICALS INC.-ACA-2025-PIM-006125

PATIENT
  Sex: Male

DRUGS (7)
  1. NUPLAZID [Suspect]
     Active Substance: PIMAVANSERIN TARTRATE
     Indication: Psychotic disorder due to a general medical condition
     Dosage: 34 MILLIGRAM, QD
     Route: 048
     Dates: start: 20241125
  2. NUPLAZID [Suspect]
     Active Substance: PIMAVANSERIN TARTRATE
     Indication: Delusion
  3. NUPLAZID [Suspect]
     Active Substance: PIMAVANSERIN TARTRATE
     Indication: Parkinson^s disease
  4. ASPIRIN [Concomitant]
     Active Substance: ASPIRIN
  5. SINEMET [Concomitant]
     Active Substance: CARBIDOPA\LEVODOPA
  6. LIPITOR [Concomitant]
     Active Substance: ATORVASTATIN CALCIUM
  7. NAMENDA [Concomitant]
     Active Substance: MEMANTINE HYDROCHLORIDE

REACTIONS (3)
  - Aggression [Unknown]
  - Agitation [Unknown]
  - Drug ineffective [Unknown]
